FAERS Safety Report 9870677 (Version 1)
Quarter: 2014Q1

REPORT INFORMATION
  Report Type: Spontaneous
  Country: FR (occurrence: FR)
  Receive Date: 20140205
  Receipt Date: 20140205
  Transmission Date: 20141002
  Serious: Yes (Other)
  Sender: FDA-Public Use
  Company Number: FR-PFIZER INC-2014031519

PATIENT
  Age: 19 Year
  Sex: Female

DRUGS (2)
  1. MEFENAMIC ACID [Suspect]
     Dosage: 2 TAB 3 TIMES A DAY APPROX. ONCE MONTHLY AND SOMETIMES FOR SEVERAL DAYS DURING MENSTRUAL PERIOD
     Route: 048
     Dates: start: 20110511, end: 20130625
  2. RELPAX [Suspect]
     Indication: MIGRAINE
     Dosage: 2 OR 3 DOSAGE FORMS WEEKLY
     Route: 048
     Dates: start: 20110511, end: 20130625

REACTIONS (1)
  - Henoch-Schonlein purpura [Recovered/Resolved]
